FAERS Safety Report 7790473-9 (Version None)
Quarter: 2011Q3

REPORT INFORMATION
  Report Type: 
  Country: None (occurrence: None)
  Receive Date: 20110930
  Receipt Date: 20110920
  Transmission Date: 20111222
  Serious: Yes (Hospitalization)
  Sender: FDA-Public Use
  Company Number: US-SANOFI-AVENTIS-2011SA063454

PATIENT
  Age: 64 Year
  Sex: Female

DRUGS (3)
  1. CARDIAC THERAPY [Concomitant]
     Route: 065
  2. LANTUS [Suspect]
     Dosage: DOSE:50 UNIT(S)
     Route: 058
  3. SOLOSTAR [Suspect]

REACTIONS (1)
  - MYOCARDIAL INFARCTION [None]
